FAERS Safety Report 12776782 (Version 1)
Quarter: 2016Q3

REPORT INFORMATION
  Report Type: Report from Study
  Country: DE (occurrence: DE)
  Receive Date: 20160923
  Receipt Date: 20160923
  Transmission Date: 20161109
  Serious: Yes (Hospitalization)
  Sender: FDA-Public Use
  Company Number: US-ASTRAZENECA-2016SF01011

PATIENT
  Age: 5 Month
  Sex: Male

DRUGS (5)
  1. SYNAGIS [Suspect]
     Active Substance: PALIVIZUMAB
     Indication: NEUROMYOPATHY
     Dosage: 150 MG
     Route: 030
     Dates: start: 20101201, end: 20110125
  2. SYNAGIS [Suspect]
     Active Substance: PALIVIZUMAB
     Indication: NEUROMYOPATHY
     Dosage: 150 MG
     Route: 030
     Dates: start: 20110125, end: 20110125
  3. SYNAGIS [Suspect]
     Active Substance: PALIVIZUMAB
     Indication: NEUROMYOPATHY
     Dosage: 150 MG
     Route: 030
     Dates: start: 20110303, end: 20110303
  4. SYNAGIS [Suspect]
     Active Substance: PALIVIZUMAB
     Indication: NEUROMYOPATHY
     Dosage: 150 MG
     Route: 030
     Dates: start: 20101103, end: 20101103
  5. SYNAGIS [Suspect]
     Active Substance: PALIVIZUMAB
     Indication: NEUROMYOPATHY
     Dosage: 150 MG
     Route: 030
     Dates: start: 20110208, end: 20110208

REACTIONS (1)
  - Pneumonia [Recovered/Resolved]

NARRATIVE: CASE EVENT DATE: 20110222
